FAERS Safety Report 10463819 (Version 5)
Quarter: 2016Q1

REPORT INFORMATION
  Report Type: Report from Study
  Country: JP (occurrence: JP)
  Receive Date: 20140919
  Receipt Date: 20160308
  Transmission Date: 20160525
  Serious: Yes (Other)
  Sender: FDA-Public Use
  Company Number: PHHY2013JP152027

PATIENT
  Age: 13 Year
  Sex: Female
  Weight: 46 kg

DRUGS (8)
  1. TEGRETOL [Suspect]
     Active Substance: CARBAMAZEPINE
     Indication: PARTIAL SEIZURES
     Route: 048
  2. TEGRETOL [Suspect]
     Active Substance: CARBAMAZEPINE
     Indication: INFANTILE SPASMS
  3. AFINITOR [Suspect]
     Active Substance: EVEROLIMUS
     Indication: ANGIOMYOLIPOMA
     Dosage: 5 MG, UNK
     Route: 048
     Dates: start: 20121205
  4. CARBAMAZEPINE. [Suspect]
     Active Substance: CARBAMAZEPINE
     Indication: PARTIAL SEIZURES
     Dosage: 450 MG, UNK
     Route: 048
  5. AFINITOR [Suspect]
     Active Substance: EVEROLIMUS
     Indication: EPILEPSY
  6. CARBAMAZEPINE. [Suspect]
     Active Substance: CARBAMAZEPINE
     Indication: INFANTILE SPASMS
  7. VALPROIC ACID. [Suspect]
     Active Substance: VALPROIC ACID
     Indication: PARTIAL SEIZURES
     Dosage: 300 MG, UNK
     Route: 048
  8. VALPROIC ACID. [Suspect]
     Active Substance: VALPROIC ACID
     Indication: INFANTILE SPASMS

REACTIONS (5)
  - Status epilepticus [Unknown]
  - Gamma-glutamyltransferase increased [Not Recovered/Not Resolved]
  - Rash [Recovering/Resolving]
  - Amenorrhoea [Not Recovered/Not Resolved]
  - Stomatitis [Not Recovered/Not Resolved]

NARRATIVE: CASE EVENT DATE: 20121211
